FAERS Safety Report 14205414 (Version 1)
Quarter: 2017Q4

REPORT INFORMATION
  Report Type: Spontaneous
  Country: KR (occurrence: KR)
  Receive Date: 20171120
  Receipt Date: 20171120
  Transmission Date: 20180321
  Serious: Yes (Other)
  Sender: FDA-Public Use
  Company Number: KR-GEHC-2017CSU003720

PATIENT

DRUGS (1)
  1. VISIPAQUE [Suspect]
     Active Substance: IODIXANOL
     Indication: INTRACRANIAL ANEURYSM
     Dosage: 220 ML, SINGLE
     Route: 013

REACTIONS (1)
  - Contrast encephalopathy [Recovered/Resolved]
